FAERS Safety Report 5594050-X (Version None)
Quarter: 2008Q1

REPORT INFORMATION
  Report Type: 
  Country: None (occurrence: None)
  Receive Date: 20080116
  Receipt Date: 20080110
  Transmission Date: 20080703
  Serious: Yes (Death)
  Sender: FDA-Public Use
  Company Number: US-PFIZER INC-2006136703

PATIENT
  Sex: Male
  Weight: 75.8 kg

DRUGS (2)
  1. CELEBREX [Suspect]
     Indication: OSTEOARTHRITIS
     Route: 048
     Dates: start: 20011210, end: 20030722
  2. VIOXX [Suspect]
     Route: 048

REACTIONS (3)
  - BRAIN INJURY [None]
  - CARDIOVASCULAR DISORDER [None]
  - CORONARY ARTERY THROMBOSIS [None]
